FAERS Safety Report 15653216 (Version 3)
Quarter: 2018Q4

REPORT INFORMATION
  Report Type: Spontaneous
  Country: JP (occurrence: JP)
  Receive Date: 20181123
  Receipt Date: 20181130
  Transmission Date: 20190205
  Serious: Yes (Hospitalization)
  Sender: FDA-Public Use
  Company Number: JP-009507513-1811JPN010084

PATIENT
  Age: 71 Year
  Sex: Female
  Weight: 45 kg

DRUGS (3)
  1. INSULIN ASPART [Concomitant]
     Active Substance: INSULIN ASPART
     Dosage: UNK
  2. NOVORAPID [Concomitant]
     Active Substance: INSULIN ASPART
     Dosage: STRENGT 70 MIX
     Dates: start: 201309
  3. SITAGLIPTIN PHOSPHATE [Suspect]
     Active Substance: SITAGLIPTIN PHOSPHATE
     Indication: TYPE 2 DIABETES MELLITUS
     Dosage: 25 MILLIGRAM, EVERYDAY
     Route: 048
     Dates: start: 201309, end: 20160418

REACTIONS (2)
  - Anti-insulin antibody positive [Unknown]
  - Hypoglycaemia [Recovered/Resolved]

NARRATIVE: CASE EVENT DATE: 201410
